FAERS Safety Report 11474628 (Version 1)
Quarter: 2015Q3

REPORT INFORMATION
  Report Type: Spontaneous
  Country: US (occurrence: None)
  Receive Date: 20150908
  Receipt Date: 20150908
  Transmission Date: 20151125
  Serious: Yes (Disabling, Other)
  Sender: FDA-Public Use
  Company Number: None

PATIENT
  Age: 57 Year
  Sex: Female
  Weight: 77.11 kg

DRUGS (5)
  1. LUMIGAN [Concomitant]
     Active Substance: BIMATOPROST
  2. ELIQUIS [Concomitant]
     Active Substance: APIXABAN
  3. PROLIA [Suspect]
     Active Substance: DENOSUMAB
     Indication: OSTEOPOROSIS
     Dosage: 1 INJECTION ONCE EVERY 6 MONTH GIVEN INTO/UNDER THE SKIN
     Dates: start: 20120930, end: 20150520
  4. SOTOLOL [Concomitant]
     Active Substance: SOTALOL
  5. LEXAPRO [Concomitant]
     Active Substance: ESCITALOPRAM OXALATE

REACTIONS (10)
  - Blister [None]
  - Transient ischaemic attack [None]
  - Gluten sensitivity [None]
  - Onychomadesis [None]
  - Fatigue [None]
  - Nausea [None]
  - Cholesteatoma [None]
  - Dizziness [None]
  - Atrial fibrillation [None]
  - Skin exfoliation [None]
